FAERS Safety Report 8330200-X (Version None)
Quarter: 2012Q2

REPORT INFORMATION
  Report Type: 
  Country: None (occurrence: None)
  Receive Date: 20120502
  Receipt Date: 20120228
  Transmission Date: 20120825
  Serious: Yes (Death, Hospitalization, Disabling)
  Sender: FDA-Public Use
  Company Number: US-CELGENEUS-163-21880-12021058

PATIENT
  Sex: Male

DRUGS (1)
  1. REVLIMID [Suspect]
     Indication: LYMPHOMA
     Dosage: 15 MILLIGRAM
     Route: 048
     Dates: start: 20120125, end: 20120101

REACTIONS (4)
  - PLEURAL EFFUSION [None]
  - PAIN [None]
  - DECREASED APPETITE [None]
  - NON-HODGKIN'S LYMPHOMA [None]
